FAERS Safety Report 5009047-8 (Version None)
Quarter: 2006Q2

REPORT INFORMATION
  Report Type: 
  Country: None (occurrence: None)
  Receive Date: 20060523
  Receipt Date: 20060516
  Transmission Date: 20061013
  Serious: Yes (Hospitalization)
  Sender: FDA-Public Use
  Company Number: FR-BOEHRINGER INGELHEIM PHARMACEUTICALS, INC.-2006-FF-00353FF

PATIENT
  Age: 83 Year
  Sex: Male
  Weight: 80 kg

DRUGS (5)
  1. ASASANTINE LP [Suspect]
     Route: 048
     Dates: start: 20020101, end: 20060317
  2. LASILIX [Concomitant]
  3. TRIATEC [Concomitant]
  4. FLECAINIDE ACETATE [Concomitant]
  5. AMLODIPINE [Concomitant]

REACTIONS (1)
  - SUBDURAL HAEMATOMA [None]
